FAERS Safety Report 7529910-3 (Version None)
Quarter: 2011Q2

REPORT INFORMATION
  Report Type: 
  Country: None (occurrence: None)
  Receive Date: 20110520
  Receipt Date: 20110301
  Transmission Date: 20111010
  Serious: Yes (Hospitalization)
  Sender: FDA-Public Use
  Company Number: SOLV00211001633

PATIENT

DRUGS (1)
  1. CREON [Suspect]
     Indication: CYSTIC FIBROSIS

REACTIONS (1)
  - CONSTIPATION [None]
